FAERS Safety Report 14963879 (Version 2)
Quarter: 2018Q2

REPORT INFORMATION
  Report Type: Spontaneous
  Country: JP (occurrence: JP)
  Receive Date: 20180601
  Receipt Date: 20180626
  Transmission Date: 20180711
  Serious: Yes (Hospitalization)
  Sender: FDA-Public Use
  Company Number: JP-SA-2018SA085744

PATIENT
  Age: 69 Year
  Sex: Female
  Weight: 32.5 kg

DRUGS (11)
  1. THYROGEN [Suspect]
     Active Substance: THYROTROPIN ALFA
     Indication: THERAPEUTIC PROCEDURE
     Dosage: 0.9 MG
     Route: 030
     Dates: start: 20170913
  2. THYROGEN [Suspect]
     Active Substance: THYROTROPIN ALFA
     Dosage: 0.9 MG
     Route: 030
     Dates: start: 20170914
  3. THYRADIN S [Concomitant]
     Active Substance: LEVOTHYROXINE SODIUM
     Indication: THYROID HORMONE REPLACEMENT THERAPY
     Dosage: 2.5 TABLETS
     Route: 048
  4. CALCIUM CARBONATE. [Concomitant]
     Active Substance: CALCIUM CARBONATE
     Indication: HYPOCALCAEMIA
     Dosage: 500 MG, QD
     Route: 048
  5. ALFACALCIDOL [Concomitant]
     Active Substance: ALFACALCIDOL
     Indication: BONE DENSITY DECREASED
     Dosage: 0.5 UG, DAILY
     Route: 048
  6. PREDNISOLONE. [Concomitant]
     Active Substance: PREDNISOLONE
     Indication: RHEUMATIC DISORDER
     Dosage: 1 MG, DAILY
     Route: 048
  7. AZULFIDINE EN-TABS [Concomitant]
     Active Substance: SULFASALAZINE
     Indication: RHEUMATIC DISORDER
     Dosage: 500 MG, BID
     Route: 048
  8. FOLIAMIN [Concomitant]
     Active Substance: FOLIC ACID
     Indication: FOLATE DEFICIENCY
     Dosage: 5 MG, QW
     Route: 048
  9. METHYCOBAL [Concomitant]
     Active Substance: METHYLCOBALAMIN
     Indication: VOCAL CORD PARESIS
     Dosage: 500 UG, TID
     Route: 048
     Dates: start: 20170530, end: 20180410
  10. RHEUMATREX [METHOTREXATE] [Concomitant]
     Indication: RHEUMATIC DISORDER
     Dosage: 8 MG, QW
     Route: 048
  11. MUCOSTA [Concomitant]
     Active Substance: REBAMIPIDE
     Indication: PROPHYLAXIS AGAINST GASTROINTESTINAL ULCER
     Dosage: 100 MG, BID
     Route: 048

REACTIONS (3)
  - Nausea [Recovered/Resolved]
  - Vomiting [Recovered/Resolved]
  - Hyponatraemia [Recovered/Resolved]

NARRATIVE: CASE EVENT DATE: 20170913
